FAERS Safety Report 25506449 (Version 3)
Quarter: 2025Q3

REPORT INFORMATION
  Report Type: Spontaneous
  Country: US (occurrence: US)
  Receive Date: 20250702
  Receipt Date: 20250929
  Transmission Date: 20251021
  Serious: Yes (Hospitalization)
  Sender: NOVARTIS
  Company Number: US-002147023-NVSC2025US101772

PATIENT
  Sex: Male

DRUGS (2)
  1. TAFINLAR [Suspect]
     Active Substance: DABRAFENIB MESYLATE
     Indication: Malignant melanoma
     Dosage: 50 MG, Q12H (BY MOUTH)
     Route: 048
     Dates: start: 202504
  2. MEKINIST [Suspect]
     Active Substance: TRAMETINIB DIMETHYL SULFOXIDE
     Indication: Malignant melanoma
     Dosage: 1.5 MG, QD (BY MOUTH)
     Route: 048
     Dates: start: 202504

REACTIONS (2)
  - Pyrexia [Unknown]
  - Adverse drug reaction [Unknown]
